FAERS Safety Report 15687959 (Version 1)
Quarter: 2018Q4

REPORT INFORMATION
  Report Type: Spontaneous
  Country: US (occurrence: US)
  Receive Date: 20181205
  Receipt Date: 20181205
  Transmission Date: 20190205
  Serious: No
  Sender: FDA-Public Use
  Company Number: US-ROCHE-2085205

PATIENT
  Age: 79 Year
  Sex: Female

DRUGS (2)
  1. ACTIVASE [Suspect]
     Active Substance: ALTEPLASE
     Indication: HEMIPARESIS
  2. ACTIVASE [Suspect]
     Active Substance: ALTEPLASE
     Indication: APHASIA
     Route: 042
     Dates: start: 20171101

REACTIONS (7)
  - Pain [Unknown]
  - Headache [Unknown]
  - Off label use [Unknown]
  - Dyspnoea [Unknown]
  - Spinal pain [Unknown]
  - Flushing [Unknown]
  - Intentional product use issue [Unknown]

NARRATIVE: CASE EVENT DATE: 20171101
